FAERS Safety Report 8449107-2 (Version None)
Quarter: 2012Q2

REPORT INFORMATION
  Report Type: 
  Country: None (occurrence: None)
  Receive Date: 20120612
  Receipt Date: 20120529
  Transmission Date: 20120825
  Serious: Yes (Other)
  Sender: FDA-Public Use
  Company Number: 2012P1034915

PATIENT
  Age: 50 Year
  Sex: Female

DRUGS (1)
  1. FENTANYL [Suspect]
     Indication: PAIN
     Dosage: INH
     Route: 055

REACTIONS (11)
  - LYMPHADENOPATHY MEDIASTINAL [None]
  - INTERSTITIAL LUNG DISEASE [None]
  - INTENTIONAL DRUG MISUSE [None]
  - ANAEMIA [None]
  - RHEUMATOID FACTOR POSITIVE [None]
  - LUNG NEOPLASM [None]
  - ALVEOLAR PROTEINOSIS [None]
  - INCORRECT ROUTE OF DRUG ADMINISTRATION [None]
  - PLEURAL EFFUSION [None]
  - HILAR LYMPHADENOPATHY [None]
  - LEUKOCYTOSIS [None]
